FAERS Safety Report 10452293 (Version 1)
Quarter: 2014Q3

REPORT INFORMATION
  Report Type: Spontaneous
  Country: JP (occurrence: JP)
  Receive Date: 20140915
  Receipt Date: 20140915
  Transmission Date: 20150326
  Serious: Yes (Other)
  Sender: FDA-Public Use
  Company Number: PHHY2008JP045463

PATIENT

DRUGS (4)
  1. TASIGNA [Suspect]
     Active Substance: NILOTINIB
     Dosage: UNK UKN, UNK
  2. TASIGNA [Suspect]
     Active Substance: NILOTINIB
     Dosage: 150 MG, UNK
     Dates: start: 201212
  3. TASIGNA [Suspect]
     Active Substance: NILOTINIB
     Dosage: 300 MG, UNK
  4. TASIGNA [Suspect]
     Active Substance: NILOTINIB
     Dosage: 300 MG, UNK
     Dates: start: 20111114

REACTIONS (2)
  - Nausea [Unknown]
  - Lung neoplasm malignant [Unknown]
